FAERS Safety Report 9153871 (Version 1)
Quarter: 2013Q1

REPORT INFORMATION
  Report Type: Spontaneous
  Country: CO (occurrence: CO)
  Receive Date: 20130311
  Receipt Date: 20130311
  Transmission Date: 20140127
  Serious: Yes (Hospitalization)
  Sender: FDA-Public Use
  Company Number: CO-GENZYME-POMP-1002861

PATIENT
  Age: 6 None
  Sex: Male
  Weight: 17 kg

DRUGS (1)
  1. MYOZYME [Suspect]
     Indication: GLYCOGEN STORAGE DISEASE TYPE II
     Dosage: UNK
     Route: 042
     Dates: start: 20120327

REACTIONS (2)
  - Bacterial infection [Not Recovered/Not Resolved]
  - Tracheostomy malfunction [Unknown]
